FAERS Safety Report 18139022 (Version 4)
Quarter: 2020Q3

REPORT INFORMATION
  Report Type: Spontaneous
  Country: US (occurrence: US)
  Receive Date: 20200812
  Receipt Date: 20200825
  Transmission Date: 20201103
  Serious: Yes (Other)
  Sender: FDA-Public Use
  Company Number: US-GLAXOSMITHKLINE-US2020AMR153188

PATIENT
  Sex: Female

DRUGS (1)
  1. ZEJULA [Suspect]
     Active Substance: NIRAPARIB
     Indication: OVARIAN CANCER
     Dosage: 300 MG, QD
     Route: 048
     Dates: start: 20200724, end: 20200731

REACTIONS (6)
  - Renal disorder [Unknown]
  - Thrombosis [Unknown]
  - Abdominal pain [Unknown]
  - Platelet count decreased [Unknown]
  - Illness [Unknown]
  - Nausea [Unknown]
